FAERS Safety Report 4778180-8 (Version None)
Quarter: 2005Q3

REPORT INFORMATION
  Report Type: 
  Country: None (occurrence: None)
  Receive Date: 20050923
  Receipt Date: 20050923
  Transmission Date: 20060218
  Serious: Yes (Other)
  Sender: FDA-Public Use
  Company Number: None

PATIENT
  Sex: Male
  Weight: 78.0187 kg

DRUGS (4)
  1. CITALOPRAM  10MG [Suspect]
     Indication: DEPRESSION
     Dosage: 20MG  QAM  PO
     Route: 048
     Dates: start: 20050321, end: 20050502
  2. CITALOPRAM  10MG [Suspect]
     Indication: POST-TRAUMATIC STRESS DISORDER
     Dosage: 20MG  QAM  PO
     Route: 048
     Dates: start: 20050321, end: 20050502
  3. QUETIAPINE FUMARATE [Concomitant]
  4. BUSPAR [Concomitant]

REACTIONS (15)
  - ABORTION INDUCED [None]
  - ASTHENIA [None]
  - CONFUSIONAL STATE [None]
  - DIARRHOEA [None]
  - DRUG INEFFECTIVE [None]
  - HEADACHE [None]
  - INFLUENZA [None]
  - IRRITABILITY [None]
  - MALAISE [None]
  - MUSCULOSKELETAL STIFFNESS [None]
  - MYALGIA [None]
  - NAUSEA [None]
  - NECK PAIN [None]
  - PAIN [None]
  - VOMITING [None]
